FAERS Safety Report 5805317-1 (Version None)
Quarter: 2008Q3

REPORT INFORMATION
  Report Type: 
  Country: None (occurrence: None)
  Receive Date: 20080709
  Receipt Date: 20080630
  Transmission Date: 20090109
  Serious: Yes (Hospitalization)
  Sender: FDA-Public Use
  Company Number: US-ELI_LILLY_AND_COMPANY-US200807000295

PATIENT
  Sex: Male
  Weight: 94.785 kg

DRUGS (7)
  1. BYETTA [Suspect]
     Indication: TYPE 2 DIABETES MELLITUS
     Dosage: 5 UG, 2/D
     Route: 058
     Dates: start: 20070701, end: 20071101
  2. BYETTA [Suspect]
     Dosage: 5 UG, 2/D
     Route: 058
     Dates: start: 20080101
  3. GLIMEPIRIDE [Concomitant]
     Indication: TYPE 2 DIABETES MELLITUS
     Dosage: 2 MG, DAILY (1/D)
     Route: 048
  4. AVANDIA [Concomitant]
     Indication: TYPE 2 DIABETES MELLITUS
     Dosage: 4 MG, EACH EVENING
     Route: 048
  5. METFORMIN HCL [Concomitant]
     Indication: TYPE 2 DIABETES MELLITUS
     Dosage: 2000 MG, EACH EVENING
     Route: 048
  6. LISINOPRIL [Concomitant]
     Indication: BLOOD PRESSURE
     Dosage: 20 MG, DAILY (1/D)
     Route: 048
  7. HYDROCHLOROTHIAZIDE [Concomitant]
     Indication: BLOOD PRESSURE
     Dosage: 25 MG, DAILY (1/D)
     Route: 048

REACTIONS (7)
  - BLISTER [None]
  - BLOOD GLUCOSE DECREASED [None]
  - DIZZINESS [None]
  - POOR PERIPHERAL CIRCULATION [None]
  - POST PROCEDURAL INFECTION [None]
  - SKIN ULCER [None]
  - WEIGHT DECREASED [None]
